FAERS Safety Report 25289611 (Version 1)
Quarter: 2025Q2

REPORT INFORMATION
  Report Type: Spontaneous
  Country: FR (occurrence: FR)
  Receive Date: 20250509
  Receipt Date: 20250509
  Transmission Date: 20250717
  Serious: Yes (Other)
  Sender: SANDOZ
  Company Number: FR-AFSSAPS-NC2025000623

PATIENT
  Age: 14 Year
  Sex: Female

DRUGS (3)
  1. IBUPROFEN [Suspect]
     Active Substance: IBUPROFEN
     Indication: Toxicity to various agents
     Route: 048
     Dates: start: 20250406, end: 20250406
  2. ACETAMINOPHEN\CODEINE PHOSPHATE [Suspect]
     Active Substance: ACETAMINOPHEN\CODEINE PHOSPHATE
     Indication: Toxicity to various agents
     Dosage: 5 DF, QD (( 500  MG/30 MG, COMPRIM? EFFERVESCENT  S?CABLE))
     Route: 048
     Dates: start: 20250406, end: 20250406
  3. TRIMEBUTINE [Suspect]
     Active Substance: TRIMEBUTINE
     Indication: Toxicity to various agents
     Dosage: 3 DF, QD
     Route: 048
     Dates: start: 20250406, end: 20250406

REACTIONS (6)
  - Cognitive disorder [Recovering/Resolving]
  - Miosis [Recovering/Resolving]
  - Hypokalaemia [Recovering/Resolving]
  - Haematemesis [Recovering/Resolving]
  - Intentional overdose [Recovered/Resolved]
  - Intentional product misuse [Recovered/Resolved]

NARRATIVE: CASE EVENT DATE: 20250406
